FAERS Safety Report 14202414 (Version 1)
Quarter: 2017Q4

REPORT INFORMATION
  Report Type: Spontaneous
  Country: US (occurrence: US)
  Receive Date: 20171117
  Receipt Date: 20171117
  Transmission Date: 20180321
  Serious: No
  Sender: FDA-Public Use
  Company Number: US-009507513-1710USA015241

PATIENT
  Age: 81 Year
  Sex: Female

DRUGS (4)
  1. BELSOMRA [Suspect]
     Active Substance: SUVOREXANT
     Indication: INSOMNIA
     Dosage: 15MG/BEDTIME
     Route: 048
     Dates: start: 201710
  2. BELSOMRA [Suspect]
     Active Substance: SUVOREXANT
     Dosage: 15MG/BEDTIME
     Route: 048
     Dates: start: 20171026
  3. LYRICA [Concomitant]
     Active Substance: PREGABALIN
  4. HYDROCODONE [Concomitant]
     Active Substance: HYDROCODONE

REACTIONS (2)
  - Disorientation [Unknown]
  - Somnolence [Unknown]

NARRATIVE: CASE EVENT DATE: 20171027
